FAERS Safety Report 6500775 (Version 8)
Quarter: 2018Q4

REPORT INFORMATION
  Report Type: Report from Study
  Country: JP (occurrence: JP)
  Receive Date: 20071214
  Receipt Date: 20181001
  Transmission Date: 20190205
  Serious: Yes (Hospitalization, Disabling, Other)
  Sender: FDA-Public Use
  Company Number: PHBS2007JP20544

PATIENT
  Age: 66 Year
  Sex: Female
  Weight: 59 kg

DRUGS (35)
  1. GLIVEC [Suspect]
     Active Substance: IMATINIB MESYLATE
     Dosage: UNK, QD
     Route: 048
     Dates: start: 20081017, end: 20081106
  2. PREDNISOLONE. [Suspect]
     Active Substance: PREDNISOLONE
     Indication: ACUTE LYMPHOCYTIC LEUKAEMIA
     Dosage: 60 MG/DAY
     Route: 048
     Dates: start: 20071031, end: 20071207
  3. PREDNISOLONE. [Suspect]
     Active Substance: PREDNISOLONE
     Dosage: 10 MG/DAY
     Route: 048
     Dates: start: 20071214, end: 20071215
  4. LASIX [Concomitant]
     Active Substance: FUROSEMIDE
     Dosage: 40 MG/DAY
     Route: 048
  5. HYALEIN [Concomitant]
     Active Substance: HYALURONATE SODIUM
     Indication: CORNEAL DISORDER
     Route: 047
     Dates: start: 20071203
  6. GLIVEC [Suspect]
     Active Substance: IMATINIB MESYLATE
     Dosage: 100 MG, QD
     Route: 048
     Dates: start: 20080807, end: 20080808
  7. PREDNISOLONE. [Suspect]
     Active Substance: PREDNISOLONE
     Dosage: 15 MG/DAY
     Route: 048
     Dates: start: 20071212, end: 20071213
  8. PREDNISOLONE. [Suspect]
     Active Substance: PREDNISOLONE
     Dosage: 2.5 MG/DAY
     Route: 048
     Dates: start: 20071218, end: 20071219
  9. LAXOBERON [Concomitant]
     Active Substance: SODIUM PICOSULFATE
     Indication: CONSTIPATION
     Dosage: 15 GTT
     Route: 048
     Dates: start: 20071031
  10. SLOW-K [Concomitant]
     Active Substance: POTASSIUM CHLORIDE
     Dosage: 2400 MG/DAY
     Route: 048
  11. AZUNOL [Concomitant]
     Active Substance: SODIUM GUALENATE
     Indication: ECZEMA
     Route: 061
     Dates: start: 20071115, end: 20071216
  12. PREDNISOLONE. [Suspect]
     Active Substance: PREDNISOLONE
     Dosage: 5 MG/DAY
     Route: 048
     Dates: start: 20071216, end: 20071217
  13. ZYLORIC [Concomitant]
     Active Substance: ALLOPURINOL
     Indication: HYPERURICAEMIA
     Dosage: 300 MG/DAY
     Route: 048
     Dates: start: 20071102, end: 20071111
  14. ZYLORIC [Concomitant]
     Active Substance: ALLOPURINOL
     Dosage: 100 MG/DAY
     Route: 048
  15. MAGNESIUM OXIDE. [Concomitant]
     Active Substance: MAGNESIUM OXIDE
     Indication: CONSTIPATION
     Dosage: 1.5 G/DAY
     Route: 048
     Dates: start: 20071031
  16. LENDORMIN [Concomitant]
     Active Substance: BROTIZOLAM
     Indication: INSOMNIA
     Dosage: 0.25 MG/DAY
     Route: 048
     Dates: start: 20071031, end: 20071110
  17. ALDACTONE [Concomitant]
     Active Substance: SPIRONOLACTONE
     Indication: OEDEMA
     Dosage: 25 MG/DAY
     Route: 048
     Dates: start: 20071109, end: 20071111
  18. ANTEBATE [Concomitant]
     Active Substance: BETAMETHASONE DIPROPIONATE
     Indication: ECZEMA
     Route: 061
     Dates: start: 20071110, end: 20071216
  19. PREDNISOLONE. [Suspect]
     Active Substance: PREDNISOLONE
     Dosage: 30 MG/DAY
     Route: 048
     Dates: start: 20071208, end: 20071211
  20. BONALON [Concomitant]
     Active Substance: ALENDRONATE SODIUM
     Indication: OSTEOPOROSIS PROPHYLAXIS
     Dosage: 5MG/DAY
     Route: 048
     Dates: start: 20071031, end: 20071101
  21. BORRAZA [Concomitant]
     Indication: HAEMORRHOIDS
     Route: 061
     Dates: start: 20071128
  22. OMEPRAL [Concomitant]
     Active Substance: OMEPRAZOLE
     Dosage: 20 MG/DAY
     Route: 048
  23. SLOW-K [Concomitant]
     Active Substance: POTASSIUM CHLORIDE
     Indication: HYPOKALAEMIA
     Dosage: 1800 MG/DAY
     Route: 048
     Dates: start: 20071124, end: 20071212
  24. DIOVAN [Concomitant]
     Active Substance: VALSARTAN
     Indication: HYPERTENSION
     Dosage: 40 MG/DAY
     Route: 048
     Dates: start: 20071206, end: 20071211
  25. UREPEARL [Concomitant]
     Active Substance: UREA
     Route: 061
     Dates: start: 20071031
  26. OMEPRAL [Concomitant]
     Active Substance: OMEPRAZOLE
     Indication: GASTROINTESTINAL HAEMORRHAGE
     Dosage: 10 MG/DAY
     Route: 048
     Dates: start: 20071113
  27. LASIX [Concomitant]
     Active Substance: FUROSEMIDE
     Indication: OEDEMA
     Dosage: 20 MG/DAY
     Route: 048
     Dates: start: 20071109, end: 20071127
  28. DEPAS [Concomitant]
     Active Substance: ETIZOLAM
     Indication: SLEEP DISORDER
     Route: 048
     Dates: start: 20071113, end: 20071126
  29. LIDOMEX [Concomitant]
     Active Substance: PREDNISOLONE VALERATE ACETATE
     Indication: ECZEMA
     Route: 061
     Dates: start: 20071109, end: 20071216
  30. GASTER [Concomitant]
     Active Substance: FAMOTIDINE
     Indication: CHRONIC GASTRITIS
     Dosage: 40 MG/DAY
     Route: 048
     Dates: start: 20071031, end: 20071111
  31. OMEPRAL [Concomitant]
     Active Substance: OMEPRAZOLE
     Dosage: 20 MG/DAY
     Route: 048
  32. ULCERLMIN [Concomitant]
     Active Substance: SUCRALFATE
     Indication: GASTROINTESTINAL HAEMORRHAGE
     Dosage: 30 ML/DAY
     Route: 048
     Dates: start: 20071128
  33. AZUNOL [Concomitant]
     Active Substance: SODIUM GUALENATE
     Indication: PROPHYLAXIS
     Route: 049
     Dates: start: 20071031
  34. GLIVEC [Suspect]
     Active Substance: IMATINIB MESYLATE
     Indication: ACUTE LYMPHOCYTIC LEUKAEMIA
     Dosage: 600 MG, DAILY
     Route: 048
     Dates: start: 20071031, end: 20071130
  35. GLIVEC [Suspect]
     Active Substance: IMATINIB MESYLATE
     Dosage: 200 MG/DAY
     Route: 048
     Dates: start: 20071225, end: 20080219

REACTIONS (19)
  - Disseminated intravascular coagulation [Recovered/Resolved]
  - Blood bilirubin increased [Unknown]
  - Fibrin degradation products increased [Unknown]
  - Rash [Recovered/Resolved]
  - Fibrin D dimer increased [Unknown]
  - Fibrin decreased [Unknown]
  - Reticulocyte count increased [Unknown]
  - Haemoglobin decreased [Unknown]
  - Gastric haemorrhage [Recovered/Resolved]
  - Anaemia [Recovered/Resolved]
  - Anaemia [Not Recovered/Not Resolved]
  - Neutrophil count decreased [Recovered/Resolved]
  - Malignant neoplasm progression [Recovering/Resolving]
  - Haemolytic anaemia [Recovered/Resolved]
  - Platelet count decreased [Unknown]
  - White blood cell count decreased [Recovered/Resolved]
  - Pulmonary oedema [Recovered/Resolved]
  - Melaena [Unknown]
  - Infection [Recovered/Resolved]

NARRATIVE: CASE EVENT DATE: 20071102
